FAERS Safety Report 8928797 (Version 3)
Quarter: 2013Q1

REPORT INFORMATION
  Report Type: Spontaneous
  Country: FI (occurrence: FI)
  Receive Date: 20121128
  Receipt Date: 20130131
  Transmission Date: 20140127
  Serious: Yes (Other)
  Sender: FDA-Public Use
  Company Number: FI-AMGEN-FINSP2012075580

PATIENT
  Age: 35 Year
  Sex: Female
  Weight: 55.5 kg

DRUGS (21)
  1. PROLIA [Suspect]
     Indication: NEUROPATHIC ARTHROPATHY
     Dosage: 60 MG/ML, ONE TIME DOSE
     Route: 058
     Dates: start: 20120502, end: 20120502
  2. OMEPRAZOLE [Concomitant]
     Dosage: UNK UNK, BID
     Route: 048
     Dates: start: 20110209
  3. HUMALOG [Concomitant]
     Dosage: UNK
     Route: 058
     Dates: start: 20061031
  4. LANTUS [Concomitant]
     Dosage: UNK
     Route: 058
     Dates: start: 20061031
  5. KALCIPOS [Concomitant]
     Dosage: UNK UNK, BID
     Route: 048
     Dates: start: 20101228
  6. MAREVAN [Concomitant]
     Dosage: 3 UNK, UNK
     Route: 048
     Dates: start: 20101005
  7. KLEXANE [Concomitant]
     Dosage: UNK UNK, QWK
     Route: 042
     Dates: start: 2010
  8. VENOFER [Concomitant]
     Dosage: 100 MG, QWK
     Route: 058
     Dates: start: 20070921
  9. ARANESP [Concomitant]
     Dosage: 100 MUG, QWK
     Route: 058
     Dates: start: 20070602
  10. MIRENA [Concomitant]
     Dosage: UNK
     Dates: start: 20080618
  11. TARGINIQ [Concomitant]
     Indication: PAIN
     Dosage: UNK UNK, BID
     Route: 048
     Dates: start: 20120316
  12. GABAPENTIN [Concomitant]
     Indication: NEURALGIA
     Dosage: UNK
     Dates: start: 20120316
  13. RESONIUM [Concomitant]
     Dosage: 15 G, QWK
     Dates: start: 20080826
  14. RENVELA [Concomitant]
     Dosage: 800 MG, QID
     Route: 048
     Dates: start: 20110316
  15. RENAVIT [Concomitant]
     Dosage: UNK UNK, QD
     Dates: start: 20070502
  16. PRIMPERAN [Concomitant]
     Indication: VOMITING
     Dosage: 10 MG, AS NECESSARY
  17. ZOFRAN ZYDIS [Concomitant]
     Indication: VOMITING
     Dosage: 4 MG, AS NECESSARY
  18. LAXOBERON [Concomitant]
     Dosage: 2.5 MG, UNK
  19. OXYNORM [Concomitant]
     Indication: PAIN
     Dosage: 5 MG, QD
  20. STESOLID NOVUM [Concomitant]
     Indication: SEDATION
     Dosage: 2,5 MG
  21. STILNOCT [Concomitant]
     Indication: SLEEP DISORDER
     Dosage: 10 MG, UNK

REACTIONS (7)
  - Hypocalcaemia [Recovered/Resolved]
  - Hyperparathyroidism [Recovered/Resolved]
  - Blood phosphorus decreased [Recovered/Resolved]
  - Alopecia [Unknown]
  - Fatigue [Unknown]
  - Pruritus [Unknown]
  - Asthenia [Unknown]
